FAERS Safety Report 4815092-5 (Version None)
Quarter: 2005Q4

REPORT INFORMATION
  Report Type: 
  Country: None (occurrence: None)
  Receive Date: 20051026
  Receipt Date: 20051012
  Transmission Date: 20060501
  Serious: Yes (Death, Life-Threatening, Hospitalization, Other)
  Sender: FDA-Public Use
  Company Number: GBS051018741

PATIENT
  Sex: Female
  Weight: 92 kg

DRUGS (1)
  1. XIGRIS [Suspect]
     Indication: SEPTIC SHOCK
     Dosage: 10.9 ML/HR
     Route: 042
     Dates: start: 20050924, end: 20050926

REACTIONS (1)
  - HAEMORRHAGE INTRACRANIAL [None]
